FAERS Safety Report 17138529 (Version 1)
Quarter: 2019Q4

REPORT INFORMATION
  Report Type: Spontaneous
  Country: FR (occurrence: FR)
  Receive Date: 20191211
  Receipt Date: 20191211
  Transmission Date: 20200122
  Serious: Yes (Hospitalization)
  Sender: FDA-Public Use
  Company Number: FR-TEVA-2019-FR-1148156

PATIENT
  Age: 80 Year
  Sex: Male
  Weight: 80 kg

DRUGS (17)
  1. ROSUVASTATINE [Concomitant]
     Active Substance: ROSUVASTATIN
  2. ODRIK 4 MG, GELULE [Suspect]
     Active Substance: TRANDOLAPRIL
     Indication: HYPERTENSION
     Dosage: 1 DOSAGE FORMS PER DAY
     Route: 048
     Dates: end: 201804
  3. DOMPERIDONE [Suspect]
     Active Substance: DOMPERIDONE
     Indication: PRODUCT USED FOR UNKNOWN INDICATION
     Dosage: 3 DOSAGE FORMS PER DAY
     Route: 048
     Dates: end: 201804
  4. XELEVIA 50 MG, COMPRIME PELLICULE [Suspect]
     Active Substance: SITAGLIPTIN PHOSPHATE
     Indication: TYPE 2 DIABETES MELLITUS
     Dosage: 1 DOSAGE FORMS PER DAY
     Route: 048
     Dates: end: 201804
  5. CACIT [Concomitant]
  6. KARDEGIC [Concomitant]
     Active Substance: ASPIRIN DL-LYSINE
  7. MIRCERA [Concomitant]
     Active Substance: METHOXY POLYETHYLENE GLYCOL-EPOETIN BETA
  8. METFORMINE [Suspect]
     Active Substance: METFORMIN HYDROCHLORIDE
     Indication: TYPE 2 DIABETES MELLITUS
     Dosage: 1 DOSAGE FORMS PER DAY
     Route: 048
     Dates: end: 201804
  9. REPAGLINIDE. [Concomitant]
     Active Substance: REPAGLINIDE
  10. UVEDOSE [Concomitant]
     Active Substance: CHOLECALCIFEROL
  11. MAG 2 [Concomitant]
     Active Substance: MAGNESIUM
  12. LERCAN [Concomitant]
     Active Substance: LERCANIDIPINE
  13. TRIMEBUTINE [Concomitant]
     Active Substance: TRIMEBUTINE
  14. MACROGOL 4000 [Suspect]
     Active Substance: POLYETHYLENE GLYCOL 4000
     Indication: PRODUCT USED FOR UNKNOWN INDICATION
     Dosage: 1 DOSAGE FORMS PER DAY
     Route: 048
     Dates: end: 201804
  15. OMEPRAZOLE. [Suspect]
     Active Substance: OMEPRAZOLE
     Indication: PRODUCT USED FOR UNKNOWN INDICATION
     Route: 048
     Dates: end: 201804
  16. ABASAGLAR [Concomitant]
     Active Substance: INSULIN GLARGINE
  17. DETENSIEL [Concomitant]
     Active Substance: BISOPROLOL FUMARATE

REACTIONS (3)
  - Hypocalcaemia [Recovering/Resolving]
  - Hypomagnesaemia [Recovering/Resolving]
  - Electrocardiogram QT prolonged [Recovering/Resolving]

NARRATIVE: CASE EVENT DATE: 201804
